FAERS Safety Report 12675985 (Version 3)
Quarter: 2016Q3

REPORT INFORMATION
  Report Type: Spontaneous
  Country: JP (occurrence: JP)
  Receive Date: 20160823
  Receipt Date: 20160905
  Transmission Date: 20161109
  Serious: Yes (Other)
  Sender: FDA-Public Use
  Company Number: JP-ROCHE-1818223

PATIENT
  Age: 6 Month
  Sex: Male

DRUGS (1)
  1. RITUXAN [Suspect]
     Active Substance: RITUXIMAB
     Indication: WISKOTT-ALDRICH SYNDROME
     Route: 065

REACTIONS (3)
  - Off label use [Unknown]
  - Cerebral haemorrhage [Not Recovered/Not Resolved]
  - Heparin-induced thrombocytopenia [Unknown]
